FAERS Safety Report 15744097 (Version 1)
Quarter: 2018Q4

REPORT INFORMATION
  Report Type: Spontaneous
  Country: US (occurrence: US)
  Receive Date: 20181220
  Receipt Date: 20181220
  Transmission Date: 20190205
  Serious: No
  Sender: FDA-Public Use
  Company Number: US-BAYER-2018-237846

PATIENT
  Age: 45 Year
  Sex: Male
  Weight: 69 kg

DRUGS (1)
  1. ALEVE [Suspect]
     Active Substance: NAPROXEN SODIUM
     Indication: BACK PAIN
     Dosage: 4 DF
     Route: 048
     Dates: start: 20181216

REACTIONS (2)
  - Drug ineffective [Unknown]
  - Incorrect dosage administered [Unknown]
